FAERS Safety Report 5011616-6 (Version None)
Quarter: 2006Q2

REPORT INFORMATION
  Report Type: 
  Country: None (occurrence: None)
  Receive Date: 20060404
  Receipt Date: 20060119
  Transmission Date: 20061013
  Serious: No
  Sender: FDA-Public Use
  Company Number: US200601003412

PATIENT
  Age: 90 Year
  Sex: Male

DRUGS (6)
  1. CYMBALTA [Suspect]
     Indication: DEPRESSION
     Dosage: 60 MG
     Dates: start: 20060109
  2. NORVASC [Concomitant]
  3. MIRTAZAPINE [Concomitant]
  4. DETROL [Concomitant]
  5. CLONAZEPAM (CLOANEPAM) [Concomitant]
  6. NEXIUM [Concomitant]

REACTIONS (5)
  - AGITATION [None]
  - FLATULENCE [None]
  - HOT FLUSH [None]
  - HYPERHIDROSIS [None]
  - NERVOUSNESS [None]
